FAERS Safety Report 21655616 (Version 1)
Quarter: 2022Q4

REPORT INFORMATION
  Report Type: Spontaneous
  Country: JP (occurrence: JP)
  Receive Date: 20221129
  Receipt Date: 20221129
  Transmission Date: 20230112
  Serious: Yes (Hospitalization)
  Sender: FDA-Public Use
  Company Number: JP-ALKEM LABORATORIES LIMITED-JP-ALKEM-2022-06792

PATIENT
  Age: 59 Year
  Sex: Male

DRUGS (18)
  1. OLANZAPINE [Suspect]
     Active Substance: OLANZAPINE
     Indication: Nausea
     Dosage: 5 MILLIGRAM EVERY 2 WEEKS FOR 7 MONTHS
     Route: 065
  2. OLANZAPINE [Suspect]
     Active Substance: OLANZAPINE
     Indication: Anxiety
  3. OLANZAPINE [Suspect]
     Active Substance: OLANZAPINE
     Indication: Agitation
  4. OLANZAPINE [Suspect]
     Active Substance: OLANZAPINE
     Indication: Akathisia
  5. QUETIAPINE FUMARATE [Suspect]
     Active Substance: QUETIAPINE FUMARATE
     Indication: Anxiety
     Dosage: UNK
     Route: 065
  6. QUETIAPINE FUMARATE [Suspect]
     Active Substance: QUETIAPINE FUMARATE
     Indication: Agitation
  7. METOCLOPRAMIDE [Suspect]
     Active Substance: METOCLOPRAMIDE
     Indication: Nausea
     Dosage: 15 MILLIGRAM PER DAY
     Route: 065
  8. PALONOSETRON [Suspect]
     Active Substance: PALONOSETRON
     Indication: Nausea
     Dosage: 0.75 MILLIGRAM
     Route: 065
  9. CLONAZEPAM [Suspect]
     Active Substance: CLONAZEPAM
     Indication: Anxiety
     Dosage: 1.5 MILLIGRAM PER DAY
     Route: 065
  10. CLONAZEPAM [Suspect]
     Active Substance: CLONAZEPAM
     Indication: Insomnia
  11. CLONAZEPAM [Suspect]
     Active Substance: CLONAZEPAM
     Indication: Akathisia
  12. CLONAZEPAM [Suspect]
     Active Substance: CLONAZEPAM
     Indication: Agitation
  13. DEXAMETHASONE [Suspect]
     Active Substance: DEXAMETHASONE
     Indication: Nausea
     Dosage: 6.6 MILLIGRAM
     Route: 065
  14. APREPITANT [Suspect]
     Active Substance: APREPITANT
     Indication: Nausea
     Dosage: 125 MILLIGRAM ONCE
     Route: 065
  15. APREPITANT [Suspect]
     Active Substance: APREPITANT
     Dosage: 80 MILLIGRAM TWICE EVERY 2 WEEKS
     Route: 065
  16. BROTIZOLAM [Suspect]
     Active Substance: BROTIZOLAM
     Indication: Anxiety
     Dosage: 0.25 MILLIGRAM PER DAY
     Route: 065
  17. BROTIZOLAM [Suspect]
     Active Substance: BROTIZOLAM
     Indication: Akathisia
  18. BROTIZOLAM [Suspect]
     Active Substance: BROTIZOLAM
     Indication: Agitation

REACTIONS (1)
  - Extrapyramidal disorder [Recovered/Resolved]
